FAERS Safety Report 13007370 (Version 1)
Quarter: 2016Q4

REPORT INFORMATION
  Report Type: Spontaneous
  Country: DK (occurrence: DK)
  Receive Date: 20161207
  Receipt Date: 20161207
  Transmission Date: 20170207
  Serious: Yes (Other)
  Sender: FDA-Public Use
  Company Number: PHHY2016DK163844

PATIENT
  Age: 27 Year
  Sex: Female
  Weight: 84 kg

DRUGS (2)
  1. SEROQUEL [Concomitant]
     Active Substance: QUETIAPINE FUMARATE
     Indication: SCHIZOPHRENIA
     Route: 065
     Dates: end: 201411
  2. LAMOTRIGINE SANDOZ [Suspect]
     Active Substance: LAMOTRIGINE
     Indication: SCHIZOPHRENIA
     Dosage: 100 MG, BID STRENGTH: 100 MG
     Route: 048
     Dates: end: 20141017

REACTIONS (4)
  - Pulmonary function test decreased [Recovering/Resolving]
  - Carbon monoxide diffusing capacity decreased [Recovering/Resolving]
  - Oxygen supplementation [Unknown]
  - Pneumonitis [Recovered/Resolved]

NARRATIVE: CASE EVENT DATE: 201303
